FAERS Safety Report 7989436-X (Version None)
Quarter: 2011Q4

REPORT INFORMATION
  Report Type: 
  Country: None (occurrence: None)
  Receive Date: 20111215
  Receipt Date: 20111130
  Transmission Date: 20120403
  Serious: Yes (Other)
  Sender: FDA-Public Use
  Company Number: CIO11022070

PATIENT
  Sex: Male

DRUGS (1)
  1. METAMUCIL-2 [Suspect]
     Route: 048

REACTIONS (2)
  - INTESTINAL OBSTRUCTION [None]
  - LARGE INTESTINE PERFORATION [None]
